FAERS Safety Report 9338608 (Version 1)
Quarter: 2013Q2

REPORT INFORMATION
  Report Type: Report from Study
  Country: MX (occurrence: MX)
  Receive Date: 20130610
  Receipt Date: 20130610
  Transmission Date: 20140414
  Serious: Yes (Death, Other)
  Sender: FDA-Public Use
  Company Number: PHHY2012MX022668

PATIENT
  Age: 72 Year
  Sex: Male

DRUGS (2)
  1. GLIVEC [Suspect]
     Indication: CHRONIC MYELOID LEUKAEMIA
     Dosage: 400 MG, UNK
     Dates: start: 20071003
  2. GLIVEC [Suspect]
     Dosage: 800 MG, UNK

REACTIONS (4)
  - Death [Fatal]
  - Chronic myeloid leukaemia [Unknown]
  - Malignant neoplasm progression [Unknown]
  - Metastases to liver [Unknown]
